FAERS Safety Report 7656909-9 (Version None)
Quarter: 2011Q3

REPORT INFORMATION
  Report Type: 
  Country: None (occurrence: None)
  Receive Date: 20110801
  Receipt Date: 20110719
  Transmission Date: 20111222
  Serious: Yes (Death)
  Sender: FDA-Public Use
  Company Number: 1000022414

PATIENT
  Age: 56 Year
  Sex: Male

DRUGS (4)
  1. NEBIVOLOL HCL [Suspect]
     Indication: HYPERTENSION
     Dosage: 5 MG (5 MG, 1 IN 1 D), ORAL
     Route: 048
  2. IPERTEN (MANIDIPINE HYDROCHLORIDE) [Suspect]
     Indication: HYPERTENSION
     Dosage: ORAL, ORAL
     Route: 048
     Dates: start: 20070101, end: 20110201
  3. IPERTEN (MANIDIPINE HYDROCHLORIDE) [Suspect]
     Indication: HYPERTENSION
     Dosage: ORAL, ORAL
     Route: 048
     Dates: start: 20110301, end: 20110403
  4. RILMENIDINE (RILMENIDINE) [Suspect]
     Indication: HYPERTENSION
     Dosage: 1 MG (1 MG, 1 IN 1 D), ORAL
     Route: 048

REACTIONS (10)
  - HEPATOCELLULAR INJURY [None]
  - CYTOLYTIC HEPATITIS [None]
  - HYPERTHYROIDISM [None]
  - LIVER TRANSPLANT [None]
  - CIRCULATORY COLLAPSE [None]
  - HEPATITIS CHOLESTATIC [None]
  - HEPATIC ATROPHY [None]
  - ENCEPHALOPATHY [None]
  - HEPATIC NECROSIS [None]
  - HAEMORRHAGE [None]
